FAERS Safety Report 10763232 (Version 2)
Quarter: 2015Q1

REPORT INFORMATION
  Report Type: Spontaneous
  Country: US (occurrence: US)
  Receive Date: 20150204
  Receipt Date: 20150209
  Transmission Date: 20150721
  Serious: No
  Sender: FDA-Public Use
  Company Number: US-GILEAD-2015-0135355

PATIENT
  Age: 55 Year
  Sex: Female

DRUGS (1)
  1. HARVONI [Suspect]
     Active Substance: LEDIPASVIR\SOFOSBUVIR
     Indication: HEPATITIS C
     Dosage: 1 DF, QD
     Route: 048
     Dates: start: 20150103

REACTIONS (5)
  - Pruritus [Recovered/Resolved]
  - Headache [Unknown]
  - Local swelling [Unknown]
  - Skin disorder [Unknown]
  - Pain of skin [Unknown]

NARRATIVE: CASE EVENT DATE: 20150125
